FAERS Safety Report 8823887 (Version 1)
Quarter: 2012Q4

REPORT INFORMATION
  Report Type: 
  Country: US (occurrence: US)
  Receive Date: 20121003
  Receipt Date: 20121003
  Transmission Date: 20130627
  Serious: No
  Sender: FDA-Public Use
  Company Number: US-009507513-1209USA002117

PATIENT
  Sex: Male

DRUGS (10)
  1. VICTRELIS [Suspect]
     Dosage: 800 mg, tid
     Route: 048
     Dates: start: 201203, end: 20120831
  2. REBETOL [Suspect]
  3. PEG-INTRON [Suspect]
  4. METOCLOPRAMIDE [Concomitant]
  5. SIMVASTATIN [Concomitant]
  6. LISINOPRIL [Concomitant]
  7. LEVEMIR [Concomitant]
  8. PRILOSEC [Concomitant]
  9. DILTIAZEM CD [Concomitant]
     Dosage: 24 HR CD 240
  10. TRAZODONE HYDROCHLORIDE [Concomitant]
     Dosage: UNK

REACTIONS (3)
  - Nausea [Unknown]
  - Vomiting [Unknown]
  - Diarrhoea [Unknown]
